FAERS Safety Report 12447351 (Version 1)
Quarter: 2016Q2

REPORT INFORMATION
  Report Type: Spontaneous
  Country: FR (occurrence: FR)
  Receive Date: 20160608
  Receipt Date: 20160608
  Transmission Date: 20160815
  Serious: Yes (Hospitalization, Other)
  Sender: FDA-Public Use
  Company Number: FR-GLAXOSMITHKLINE-FR2016GSK081309

PATIENT
  Age: 82 Year
  Sex: Female

DRUGS (2)
  1. OMEPRAZOLE. [Concomitant]
     Active Substance: OMEPRAZOLE
  2. VOLTARENE [Suspect]
     Active Substance: DICLOFENAC SODIUM
     Indication: RHEUMATIC DISORDER
     Dosage: 75 MG, BID
     Route: 048
     Dates: start: 20160524, end: 20160526

REACTIONS (5)
  - Abdominal pain [Recovering/Resolving]
  - Flatulence [Recovering/Resolving]
  - Vomiting [Recovering/Resolving]
  - Intestinal obstruction [Recovering/Resolving]
  - Nausea [Recovering/Resolving]

NARRATIVE: CASE EVENT DATE: 20160526
